FAERS Safety Report 8395925-9 (Version None)
Quarter: 2012Q2

REPORT INFORMATION
  Report Type: 
  Country: None (occurrence: None)
  Receive Date: 20120530
  Receipt Date: 20120524
  Transmission Date: 20120825
  Serious: Yes (Other)
  Sender: FDA-Public Use
  Company Number: GB-ELI_LILLY_AND_COMPANY-GB201204005474

PATIENT
  Age: 42 Year
  Sex: Male
  Weight: 72.6 kg

DRUGS (4)
  1. HUMULIN R [Suspect]
     Indication: TYPE 2 DIABETES MELLITUS
     Dosage: 12 U, BID
     Route: 058
     Dates: start: 20120402, end: 20120403
  2. METFORMIN HCL [Concomitant]
     Dosage: 850 MG, TID
  3. GLICLAZIDE [Concomitant]
     Dosage: 80 MG, QD
  4. SIMVASTATIN [Concomitant]
     Dosage: 40 MG, UNK

REACTIONS (1)
  - HYPERSENSITIVITY [None]
